FAERS Safety Report 14719409 (Version 2)
Quarter: 2018Q2

REPORT INFORMATION
  Report Type: Spontaneous
  Country: RO (occurrence: RO)
  Receive Date: 20180405
  Receipt Date: 20180406
  Transmission Date: 20180711
  Serious: Yes (Other)
  Sender: FDA-Public Use
  Company Number: RO-SUN PHARMACEUTICAL INDUSTRIES LTD-2017RR-167622

PATIENT
  Age: 73 Year
  Sex: Male

DRUGS (5)
  1. DIHYDROPYRIDINE CALCIUM CHANNEL BLOCKER [Suspect]
     Active Substance: UNSPECIFIED INGREDIENT
     Indication: PRODUCT USED FOR UNKNOWN INDICATION
     Route: 065
  2. ANGIOTENSIN-CONVERTING ENZYME INHIBITOR [Suspect]
     Active Substance: UNSPECIFIED INGREDIENT
     Indication: PRODUCT USED FOR UNKNOWN INDICATION
     Route: 065
  3. SPIRONOLACTONE. [Suspect]
     Active Substance: SPIRONOLACTONE
     Indication: PRODUCT USED FOR UNKNOWN INDICATION
     Route: 065
  4. DIGOXIN. [Suspect]
     Active Substance: DIGOXIN
     Indication: PRODUCT USED FOR UNKNOWN INDICATION
     Route: 065
  5. FUROSEMIDE. [Suspect]
     Active Substance: FUROSEMIDE
     Indication: PRODUCT USED FOR UNKNOWN INDICATION
     Route: 065

REACTIONS (3)
  - Gynaecomastia [Unknown]
  - Dyspnoea [Unknown]
  - Anxiety [Unknown]
